FAERS Safety Report 4673558-5 (Version None)
Quarter: 2005Q2

REPORT INFORMATION
  Report Type: 
  Country: None (occurrence: None)
  Receive Date: 20050525
  Receipt Date: 20050420
  Transmission Date: 20051028
  Serious: Yes (Other)
  Sender: FDA-Public Use
  Company Number: JP-BRISTOL-MYERS SQUIBB COMPANY-12944583

PATIENT
  Age: 62 Year
  Sex: Female

DRUGS (5)
  1. GATIFLO TABS [Suspect]
     Indication: CYSTITIS
     Route: 048
     Dates: start: 20030224, end: 20030302
  2. OMEPRAL [Concomitant]
     Indication: GASTROOESOPHAGEAL REFLUX DISEASE
     Route: 048
     Dates: start: 20030219, end: 20030305
  3. IRSOGLADINE MALEATE [Concomitant]
     Route: 048
     Dates: start: 20030219, end: 20030305
  4. GASMOTIN [Concomitant]
     Route: 048
     Dates: start: 20030219, end: 20030305
  5. SYLLABLE [Concomitant]
     Route: 048
     Dates: start: 20030225, end: 20030228

REACTIONS (2)
  - RENAL DISORDER [None]
  - RENAL FAILURE ACUTE [None]
